FAERS Safety Report 20223609 (Version 1)
Quarter: 2021Q4

REPORT INFORMATION
  Report Type: Spontaneous
  Country: US (occurrence: US)
  Receive Date: 20211223
  Receipt Date: 20211223
  Transmission Date: 20220303
  Serious: No
  Sender: FDA-Public Use
  Company Number: US-VIIV HEALTHCARE LIMITED-US2021AMR256468

PATIENT
  Sex: Male

DRUGS (2)
  1. SELZENTRY [Suspect]
     Active Substance: MARAVIROC
     Indication: Tinnitus
     Dosage: UNK
  2. PRAVASTATIN [Suspect]
     Active Substance: PRAVASTATIN
     Indication: Tinnitus
     Dosage: 10 MG

REACTIONS (1)
  - Product prescribing issue [Unknown]
